FAERS Safety Report 7682648-4 (Version None)
Quarter: 2011Q3

REPORT INFORMATION
  Report Type: 
  Country: None (occurrence: None)
  Receive Date: 20110810
  Receipt Date: 20110726
  Transmission Date: 20111222
  Serious: Yes (Hospitalization, Other)
  Sender: FDA-Public Use
  Company Number: 09-AUR-10267

PATIENT
  Age: 43 Year
  Sex: Male

DRUGS (8)
  1. FLUCONAZOLE [Suspect]
     Indication: ORAL CANDIDIASIS
     Dosage: 1 IN 1 D, SUBCUTANEOUS
     Route: 058
     Dates: start: 20071105, end: 20071113
  2. METFORMIN HCL [Concomitant]
  3. RAMIPRIL [Concomitant]
  4. ATENOLOL [Concomitant]
  5. TRIMETHOPRIM + SULFAMETHOXAZOLE [Suspect]
     Indication: ANTIFUNGAL PROPHYLAXIS
     Dosage: 3 IN 1 D
     Dates: start: 20071031
  6. ZOCOR [Suspect]
     Indication: MYOCARDIAL ISCHAEMIA
     Dosage: 1 IN 1 D)
     Dates: start: 20070301, end: 20071113
  7. CLOPIDOGREL [Concomitant]
  8. GLICLAZIDE (GLICLAZIDE) [Concomitant]

REACTIONS (7)
  - RESPIRATORY FAILURE [None]
  - CHEST PAIN [None]
  - TUBERCULOSIS [None]
  - RENAL FAILURE ACUTE [None]
  - RHABDOMYOLYSIS [None]
  - HYPOTENSION [None]
  - OESOPHAGITIS [None]
